FAERS Safety Report 15435730 (Version 1)
Quarter: 2018Q3

REPORT INFORMATION
  Report Type: Spontaneous
  Country: PE (occurrence: PE)
  Receive Date: 20180927
  Receipt Date: 20180927
  Transmission Date: 20181010
  Serious: Yes (Death, Hospitalization)
  Sender: FDA-Public Use
  Company Number: PE-JNJFOC-20180925441

PATIENT
  Age: 33 Year
  Sex: Male
  Weight: 37.5 kg

DRUGS (7)
  1. SIRTURO [Suspect]
     Active Substance: BEDAQUILINE FUMARATE
     Indication: TUBERCULOSIS
     Route: 048
     Dates: start: 20170208
  2. LINEZOLID. [Suspect]
     Active Substance: LINEZOLID
     Indication: TUBERCULOSIS
     Route: 048
     Dates: start: 20170208, end: 20180818
  3. CAPREOMYCIN [Suspect]
     Active Substance: CAPREOMYCIN
     Indication: TUBERCULOSIS
     Route: 030
     Dates: start: 20170208, end: 20170810
  4. PYRIDOXIN [Concomitant]
     Active Substance: PYRIDOXINE
     Indication: TUBERCULOSIS
     Route: 048
     Dates: start: 20170208, end: 20180818
  5. SIRTURO [Suspect]
     Active Substance: BEDAQUILINE FUMARATE
     Indication: TUBERCULOSIS
     Route: 048
     Dates: end: 20180326
  6. LEVOFLOXACIN. [Suspect]
     Active Substance: LEVOFLOXACIN
     Indication: TUBERCULOSIS
     Route: 048
     Dates: start: 20170208, end: 20180818
  7. CYCLOSERINE. [Suspect]
     Active Substance: CYCLOSERINE
     Indication: TUBERCULOSIS
     Route: 048
     Dates: start: 20170208, end: 20180818

REACTIONS (5)
  - Intentional product use issue [Unknown]
  - Sepsis [Unknown]
  - Off label use [Unknown]
  - Bronchiectasis [Fatal]
  - Pulmonary tuberculosis [Fatal]

NARRATIVE: CASE EVENT DATE: 20180820
